FAERS Safety Report 8500651-9 (Version None)
Quarter: 2012Q2

REPORT INFORMATION
  Report Type: 
  Country: None (occurrence: None)
  Receive Date: 20120405
  Receipt Date: 20091111
  Transmission Date: 20120825
  Serious: Yes (Disabling, Other)
  Sender: FDA-Public Use
  Company Number: PHEH2009US00671

PATIENT
  Age: 77 Year
  Sex: Female

DRUGS (4)
  1. METHOTREXATE SODIUM [Concomitant]
  2. ORENCIA [Concomitant]
  3. PREDNISONE TAB [Concomitant]
  4. RECLAST [Suspect]
     Indication: OSTEOPENIA
     Dosage: 5MG, UNKNOWN, INFUSION
     Dates: start: 20080909

REACTIONS (6)
  - OSTEONECROSIS [None]
  - TOOTH LOSS [None]
  - PAIN IN JAW [None]
  - BONE DISORDER [None]
  - ERYTHEMA [None]
  - JOINT SWELLING [None]
